FAERS Safety Report 25679738 (Version 1)
Quarter: 2025Q3

REPORT INFORMATION
  Report Type: Spontaneous
  Country: EU (occurrence: EU)
  Receive Date: 20250814
  Receipt Date: 20250814
  Transmission Date: 20251021
  Serious: Yes (Other)
  Sender: AUROBINDO
  Company Number: EU-SANDOZ-SDZ2025DE042702

PATIENT
  Age: 40 Year

DRUGS (3)
  1. LOSARTAN [Suspect]
     Active Substance: LOSARTAN
     Indication: Product used for unknown indication
     Route: 065
  2. RAMIPRIL [Suspect]
     Active Substance: RAMIPRIL
     Indication: Product used for unknown indication
     Route: 065
  3. AMLODIPINE [Suspect]
     Active Substance: AMLODIPINE BESYLATE
     Indication: Hypertension
     Route: 065

REACTIONS (17)
  - Hypertension [Unknown]
  - Angina pectoris [Unknown]
  - Renal pain [Unknown]
  - Nocturnal dyspnoea [Unknown]
  - Cardiac disorder [Unknown]
  - Renal disorder [Unknown]
  - Lung disorder [Unknown]
  - Pain [Unknown]
  - Pruritus [Unknown]
  - Abdominal pain upper [Unknown]
  - Dyspnoea [Unknown]
  - Pigmentation disorder [Unknown]
  - Neuralgia [Unknown]
  - Headache [Unknown]
  - Pain of skin [Unknown]
  - Road traffic accident [Unknown]
  - Chest discomfort [Unknown]
